FAERS Safety Report 25662035 (Version 1)
Quarter: 2025Q3

REPORT INFORMATION
  Report Type: Report from Study
  Country: JP (occurrence: JP)
  Receive Date: 20250810
  Receipt Date: 20250810
  Transmission Date: 20251021
  Serious: Yes (Death)
  Sender: ALEXION PHARMACEUTICALS
  Company Number: JP-ASTRAZENECA-240107791_032320_P_1

PATIENT
  Age: 42 Year
  Sex: Female
  Weight: 31 kg

DRUGS (5)
  1. ANIFROLUMAB [Suspect]
     Active Substance: ANIFROLUMAB
     Indication: Systemic lupus erythematosus
     Dates: start: 20220923, end: 20220923
  2. CELLCEPT [Suspect]
     Active Substance: MYCOPHENOLATE MOFETIL
     Indication: Systemic lupus erythematosus
  3. CELLCEPT [Suspect]
     Active Substance: MYCOPHENOLATE MOFETIL
  4. BETAMETHASONE [Suspect]
     Active Substance: BETAMETHASONE
     Indication: Systemic lupus erythematosus
     Route: 065
  5. BETAMETHASONE [Suspect]
     Active Substance: BETAMETHASONE
     Route: 065

REACTIONS (1)
  - Encephalitis herpes [Fatal]

NARRATIVE: CASE EVENT DATE: 20221003
